FAERS Safety Report 13684912 (Version 3)
Quarter: 2017Q3

REPORT INFORMATION
  Report Type: Spontaneous
  Country: FR (occurrence: FR)
  Receive Date: 20170623
  Receipt Date: 20170811
  Transmission Date: 20171127
  Serious: Yes (Death, Life-Threatening, Hospitalization)
  Sender: FDA-Public Use
  Company Number: FR-CELGENEUS-FRA-20170605637

PATIENT
  Age: 78 Year
  Sex: Male
  Weight: 49 kg

DRUGS (37)
  1. INNOHEP [Concomitant]
     Active Substance: TINZAPARIN SODIUM
     Dosage: 1400 IU (INTERNATIONAL UNIT)
     Route: 058
     Dates: start: 20170511, end: 20170522
  2. OXYCONTIN [Concomitant]
     Active Substance: OXYCODONE HYDROCHLORIDE
     Dosage: 120 MILLIGRAM
     Route: 048
     Dates: start: 20170522, end: 20170523
  3. EPREX [Concomitant]
     Active Substance: ERYTHROPOIETIN
     Indication: ANAEMIA PROPHYLAXIS
     Dosage: 4000 IU (INTERNATIONAL UNIT)
     Route: 058
     Dates: start: 20161114
  4. VALACICLOVIR [Concomitant]
     Active Substance: VALACYCLOVIR HYDROCHLORIDE
     Indication: PRODUCT USED FOR UNKNOWN INDICATION
     Dosage: 1000 MILLIGRAM
     Route: 065
  5. ESOMEPRAZOLE [Concomitant]
     Active Substance: ESOMEPRAZOLE
     Indication: GASTROOESOPHAGEAL REFLUX DISEASE
     Dosage: 20 MILLIGRAM
     Route: 048
     Dates: start: 20170511, end: 20170529
  6. DEXAMETHASONE. [Suspect]
     Active Substance: DEXAMETHASONE
     Indication: PLASMA CELL MYELOMA
     Dosage: 20 MILLIGRAM
     Route: 048
     Dates: start: 20150930, end: 20160425
  7. KERLONE [Concomitant]
     Active Substance: BETAXOLOL HYDROCHLORIDE
     Indication: HYPERTENSION
     Dosage: 20 MILLIGRAM
     Route: 048
     Dates: start: 20130909
  8. LEDERFOLINE [Concomitant]
     Active Substance: LEUCOVORIN CALCIUM
     Indication: PRODUCT USED FOR UNKNOWN INDICATION
     Dosage: 25 MILLIGRAM
     Route: 065
  9. ZOLPIDEM [Concomitant]
     Active Substance: ZOLPIDEM\ZOLPIDEM TARTRATE
     Indication: ANXIETY
     Dosage: 10 MILLIGRAM
     Route: 048
     Dates: start: 20170526, end: 20170528
  10. FORLAX [Concomitant]
     Active Substance: POLYETHYLENE GLYCOL 4000
     Indication: CONSTIPATION
     Dosage: 10 GRAM
     Route: 048
     Dates: start: 20170523, end: 20170529
  11. TRIMEBUTINE [Concomitant]
     Active Substance: TRIMEBUTINE
     Indication: ABDOMINAL PAIN
     Route: 048
     Dates: start: 20151030
  12. FLECAINE [Concomitant]
     Active Substance: FLECAINIDE
     Indication: ARRHYTHMIA
     Dosage: 50 MILLIGRAM
     Route: 048
     Dates: start: 20160429
  13. REVLIMID [Suspect]
     Active Substance: LENALIDOMIDE
     Indication: PLASMA CELL MYELOMA
     Dosage: 5 MILLIGRAM
     Route: 048
     Dates: start: 20150915, end: 20170512
  14. ZOMETA [Concomitant]
     Active Substance: ZOLEDRONIC ACID
     Indication: PROPHYLAXIS
     Dosage: 4 MILLIGRAM
     Route: 041
     Dates: start: 20160718
  15. ALPRAZOLAM. [Concomitant]
     Active Substance: ALPRAZOLAM
     Dosage: 1 MILLIGRAM
     Route: 048
     Dates: start: 20170526
  16. ALPRAZOLAM. [Concomitant]
     Active Substance: ALPRAZOLAM
     Dosage: .5 MILLIGRAM
     Route: 048
     Dates: start: 20170511
  17. INNOHEP [Concomitant]
     Active Substance: TINZAPARIN SODIUM
     Indication: THROMBOSIS PROPHYLAXIS
     Dosage: 1800 IU (INTERNATIONAL UNIT)
     Route: 058
     Dates: start: 20160319
  18. ZOLPIDEM [Concomitant]
     Active Substance: ZOLPIDEM\ZOLPIDEM TARTRATE
     Dosage: 7.5 MILLIGRAM
     Route: 048
     Dates: start: 20170525, end: 20170525
  19. PARAFFIN [Concomitant]
     Active Substance: PARAFFIN
     Indication: CONSTIPATION
     Dosage: 3 MICROGRAM
     Route: 048
     Dates: start: 20170523, end: 20170529
  20. ALPRAZOLAM. [Concomitant]
     Active Substance: ALPRAZOLAM
     Dosage: .25 MILLIGRAM
     Route: 048
     Dates: start: 20170524
  21. PARACETAMOL [Concomitant]
     Active Substance: ACETAMINOPHEN
     Indication: BACK PAIN
     Dosage: GBQ
     Route: 048
     Dates: start: 20150915
  22. PANTOPRAZOLE [Concomitant]
     Active Substance: PANTOPRAZOLE
     Indication: GASTROOESOPHAGEAL REFLUX DISEASE
     Route: 048
     Dates: start: 20151018
  23. OXYCONTIN [Concomitant]
     Active Substance: OXYCODONE HYDROCHLORIDE
     Indication: BACK PAIN
     Dosage: 120 MILLIGRAM
     Route: 048
     Dates: start: 20161017, end: 20170510
  24. OXYCONTIN [Concomitant]
     Active Substance: OXYCODONE HYDROCHLORIDE
     Route: 048
     Dates: start: 20170522, end: 20170522
  25. SPASFON [Concomitant]
     Active Substance: PHLOROGLUCINOL\1,3,5-TRIMETHOXYBENZENE
     Indication: ABDOMINAL PAIN
     Route: 048
     Dates: start: 20170516
  26. GRANOCYTE [Concomitant]
     Active Substance: LENOGRASTIM
     Indication: PRODUCT USED FOR UNKNOWN INDICATION
     Route: 058
  27. BACTRIM [Concomitant]
     Active Substance: SULFAMETHOXAZOLE\TRIMETHOPRIM
     Indication: PRODUCT USED FOR UNKNOWN INDICATION
     Dosage: .4286 TABLET
     Route: 065
  28. MOVICOL [Concomitant]
     Active Substance: POLYETHYLENE GLYCOL 3350\POTASSIUM CHLORIDE\SODIUM BICARBONATE\SODIUM CHLORIDE
     Indication: PROPHYLAXIS
     Dosage: 1 SACHET
     Route: 048
     Dates: start: 20170511, end: 20170512
  29. ALPRAZOLAM. [Concomitant]
     Active Substance: ALPRAZOLAM
     Indication: ANXIETY
     Dosage: .125 MILLIGRAM
     Route: 048
     Dates: start: 20150924
  30. PARACETAMOL [Concomitant]
     Active Substance: ACETAMINOPHEN
     Route: 041
     Dates: start: 20170511
  31. OXYCONTIN [Concomitant]
     Active Substance: OXYCODONE HYDROCHLORIDE
     Route: 048
     Dates: start: 20170511, end: 20170511
  32. OXYCONTIN [Concomitant]
     Active Substance: OXYCODONE HYDROCHLORIDE
     Dosage: 240 MILLIGRAM
     Route: 048
     Dates: start: 20170511, end: 20170521
  33. TRAMADOL. [Concomitant]
     Active Substance: TRAMADOL
     Indication: BACK PAIN
     Route: 041
     Dates: start: 20170511
  34. FUNGIZONE [Concomitant]
     Active Substance: AMPHOTERICIN B
     Indication: FUNGAL INFECTION
     Dosage: 3 TABLESPOON
     Route: 048
     Dates: start: 20170523, end: 20170601
  35. CIPROFLOXACIN. [Concomitant]
     Active Substance: CIPROFLOXACIN
     Indication: FEBRILE NEUTROPENIA
     Dosage: 1500 MILLIGRAM
     Route: 048
     Dates: start: 20160429
  36. OXYCONTIN [Concomitant]
     Active Substance: OXYCODONE HYDROCHLORIDE
     Indication: BACK PAIN
     Dosage: 80 MILLIGRAM
     Route: 048
     Dates: start: 20160822
  37. NORMACOL [Concomitant]
     Active Substance: HERBALS\KARAYA GUM
     Indication: CONSTIPATION
     Route: 054
     Dates: start: 20170523, end: 20170526

REACTIONS (2)
  - General physical health deterioration [Fatal]
  - Back pain [Not Recovered/Not Resolved]

NARRATIVE: CASE EVENT DATE: 20170511
